FAERS Safety Report 7072046-9 (Version None)
Quarter: 2010Q4

REPORT INFORMATION
  Report Type: 
  Country: None (occurrence: None)
  Receive Date: 20101029
  Receipt Date: 20091124
  Transmission Date: 20110411
  Serious: No
  Sender: FDA-Public Use
  Company Number: A0826668A

PATIENT
  Age: 57 Year
  Sex: Male

DRUGS (12)
  1. ADVAIR DISKUS 100/50 [Suspect]
     Indication: ASTHMA
     Dosage: 1PUFF TWICE PER DAY
     Route: 055
     Dates: start: 20091120
  2. KLONOPIN [Concomitant]
  3. CYPROHEPTADINE HCL [Concomitant]
  4. VITAMIN D [Concomitant]
  5. PYRIDOXINE HCL [Concomitant]
  6. VITAMIN B-12 [Concomitant]
  7. RESPIRADOL [Concomitant]
  8. UNKNOWN MEDICATION [Concomitant]
  9. CALCIUM LACTATE [Concomitant]
  10. HORNY GOAT WEED [Concomitant]
  11. LOVAZA [Concomitant]
  12. OMEPRAZOLE [Concomitant]

REACTIONS (6)
  - COUGH [None]
  - DISCOMFORT [None]
  - OROPHARYNGEAL PAIN [None]
  - PAIN [None]
  - SNEEZING [None]
  - UPPER RESPIRATORY TRACT INFECTION [None]
